FAERS Safety Report 13539483 (Version 1)
Quarter: 2017Q2

REPORT INFORMATION
  Report Type: Spontaneous
  Country: US (occurrence: US)
  Receive Date: 20170512
  Receipt Date: 20170512
  Transmission Date: 20170830
  Serious: No
  Sender: FDA-Public Use
  Company Number: US-PFIZER INC-2017208588

PATIENT
  Sex: Female

DRUGS (1)
  1. LYRICA [Suspect]
     Active Substance: PREGABALIN

REACTIONS (5)
  - Gait disturbance [Unknown]
  - Vomiting [Unknown]
  - Malaise [Unknown]
  - Bedridden [Unknown]
  - Withdrawal syndrome [Unknown]
